FAERS Safety Report 7132530-6 (Version None)
Quarter: 2010Q4

REPORT INFORMATION
  Report Type: 
  Country: None (occurrence: None)
  Receive Date: 20101130
  Receipt Date: 20101130
  Transmission Date: 20110411
  Serious: Yes (Hospitalization)
  Sender: FDA-Public Use
  Company Number: None

PATIENT
  Sex: Male
  Weight: 78 kg

DRUGS (2)
  1. CISPLATIN [Suspect]
     Dates: end: 20101109
  2. VINORELBINE [Suspect]
     Dosage: 116 MG
     Dates: end: 20101116

REACTIONS (1)
  - PNEUMONIA [None]
